FAERS Safety Report 23777590 (Version 1)
Quarter: 2024Q2

REPORT INFORMATION
  Report Type: Spontaneous
  Country: US (occurrence: US)
  Receive Date: 20240424
  Receipt Date: 20240424
  Transmission Date: 20240716
  Serious: Yes (Other)
  Sender: FDA-Public Use
  Company Number: US-BAYER-2024A054101

PATIENT
  Sex: Female

DRUGS (1)
  1. MIRENA [Suspect]
     Active Substance: LEVONORGESTREL
     Indication: Contraception
     Dosage: 20?G/DAY
     Route: 015
     Dates: start: 20240312

REACTIONS (3)
  - Pregnancy with contraceptive device [Recovered/Resolved]
  - Twin pregnancy [Recovered/Resolved]
  - Expired device used [None]

NARRATIVE: CASE EVENT DATE: 20240101
